FAERS Safety Report 5102799-8 (Version None)
Quarter: 2006Q3

REPORT INFORMATION
  Report Type: 
  Country: None (occurrence: None)
  Receive Date: 20060907
  Receipt Date: 20060823
  Transmission Date: 20061208
  Serious: Yes (Hospitalization)
  Sender: FDA-Public Use
  Company Number: GXKR2006GR05182

PATIENT
  Age: 12 Year
  Sex: Male

DRUGS (1)
  1. AMOXICILLIN + CLAVULANATE POTASSIUM (NGX) (AMOXICILLIN, CLAVULANATE) U [Suspect]
     Indication: UPPER RESPIRATORY TRACT INFECTION

REACTIONS (15)
  - ABDOMINAL PAIN [None]
  - ANAEMIA [None]
  - ANOREXIA [None]
  - EOSINOPHILIA [None]
  - GLOMERULAR FILTRATION RATE DECREASED [None]
  - GLYCOSURIA [None]
  - KIDNEY ENLARGEMENT [None]
  - LEUKOCYTOSIS [None]
  - MALAISE [None]
  - NEPHRITIS INTERSTITIAL [None]
  - PALLOR [None]
  - RED BLOOD CELL SEDIMENTATION RATE INCREASED [None]
  - RENAL FAILURE ACUTE [None]
  - RENAL TUBULAR DISORDER [None]
  - WEIGHT DECREASED [None]
